FAERS Safety Report 14776700 (Version 1)
Quarter: 2018Q2

REPORT INFORMATION
  Report Type: Spontaneous
  Country: FR (occurrence: FR)
  Receive Date: 20180419
  Receipt Date: 20180419
  Transmission Date: 20180711
  Serious: Yes (Other)
  Sender: FDA-Public Use
  Company Number: FR-MERCK KGAA-2046001

PATIENT
  Sex: Female

DRUGS (1)
  1. NOVOTHYROX [Suspect]
     Active Substance: LEVOTHYROXINE SODIUM
     Indication: PRODUCT USED FOR UNKNOWN INDICATION

REACTIONS (16)
  - Balance disorder [None]
  - Disturbance in attention [None]
  - Memory impairment [None]
  - Malaise [Not Recovered/Not Resolved]
  - Feeling cold [None]
  - Hyperthyroidism [None]
  - Malaise [None]
  - Depression [Not Recovered/Not Resolved]
  - Decreased appetite [None]
  - Vertigo [None]
  - Blood thyroid stimulating hormone increased [Recovered/Resolved]
  - Constipation [None]
  - Diarrhoea [None]
  - Hyperphagia [None]
  - Headache [None]
  - Asthenia [None]
